FAERS Safety Report 6639221-6 (Version None)
Quarter: 2010Q1

REPORT INFORMATION
  Report Type: 
  Country: None (occurrence: None)
  Receive Date: 20100315
  Receipt Date: 20100225
  Transmission Date: 20100710
  Serious: Yes (Death)
  Sender: FDA-Public Use
  Company Number: 2010VX000067

PATIENT
  Age: 48 Year
  Sex: Male

DRUGS (3)
  1. DIASTAT [Suspect]
     Indication: DRUG USE FOR UNKNOWN INDICATION
  2. HYDROCODONE BITARTRATE AND ACETAMINOPHEN [Suspect]
     Indication: DRUG USE FOR UNKNOWN INDICATION
  3. ETHANOL [Suspect]
     Indication: DRUG USE FOR UNKNOWN INDICATION

REACTIONS (8)
  - ANOXIC ENCEPHALOPATHY [None]
  - ASPARTATE AMINOTRANSFERASE INCREASED [None]
  - CEREBELLAR INFARCTION [None]
  - HAEMODIALYSIS [None]
  - INTERNATIONAL NORMALISED RATIO INCREASED [None]
  - POISONING [None]
  - RENAL FAILURE [None]
  - UNRESPONSIVE TO STIMULI [None]
